FAERS Safety Report 8294415-1 (Version None)
Quarter: 2012Q2

REPORT INFORMATION
  Report Type: 
  Country: None (occurrence: None)
  Receive Date: 20120418
  Receipt Date: 20120127
  Transmission Date: 20120825
  Serious: Yes (Hospitalization)
  Sender: FDA-Public Use
  Company Number: PHHO2012US001756

PATIENT
  Sex: Female
  Weight: 109.76 kg

DRUGS (5)
  1. SPIRONOLACTONE [Suspect]
     Indication: CARDIAC FAILURE CHRONIC
     Dosage: 25 MG, UNK
     Dates: start: 20110105
  2. FUROSEMIDE [Concomitant]
  3. PLACEBO [Suspect]
     Indication: CARDIAC FAILURE ACUTE
     Dosage: PLACEBO
     Route: 048
     Dates: start: 20110107
  4. DIOVAN [Suspect]
     Indication: HYPERTENSION
     Dosage: 160 MG, UNK
  5. METOPROLOL TARTRATE [Suspect]
     Indication: HYPERTENSION
     Dosage: 25 MG, BID
     Dates: start: 20020805

REACTIONS (1)
  - CARDIAC FAILURE [None]
